FAERS Safety Report 7593573-1 (Version None)
Quarter: 2011Q2

REPORT INFORMATION
  Report Type: 
  Country: None (occurrence: None)
  Receive Date: 20110609
  Receipt Date: 20110408
  Transmission Date: 20111010
  Serious: No
  Sender: FDA-Public Use
  Company Number: TH-2011-00079

PATIENT
  Age: 47 Year
  Sex: Male

DRUGS (2)
  1. ENBREL [Concomitant]
  2. EGRIFTA [Suspect]
     Indication: LIPODYSTROPHY ACQUIRED
     Dates: start: 20110201

REACTIONS (2)
  - JOINT SWELLING [None]
  - ARTHRALGIA [None]
